FAERS Safety Report 24166854 (Version 1)
Quarter: 2024Q3

REPORT INFORMATION
  Report Type: Spontaneous
  Country: PL (occurrence: PL)
  Receive Date: 20240802
  Receipt Date: 20240802
  Transmission Date: 20241017
  Serious: Yes (Life-Threatening)
  Sender: ACCORD
  Company Number: None

PATIENT
  Age: 38 Year
  Sex: Female
  Weight: 84 kg

DRUGS (5)
  1. PACLITAXEL [Suspect]
     Active Substance: PACLITAXEL
     Indication: Ovarian cancer
     Dosage: 327.25 DOSE UNIT UNSPECIFIED
     Dates: start: 20240516, end: 20240516
  2. FAMOGAST [Concomitant]
     Indication: Ovarian cancer
     Dates: start: 20240516, end: 20240516
  3. CLEMASTINE [Concomitant]
     Active Substance: CLEMASTINE
     Indication: Ovarian cancer
     Dates: start: 20240516, end: 20240516
  4. DEXAMETHASONE [Concomitant]
     Active Substance: DEXAMETHASONE
     Indication: Ovarian cancer
     Dates: start: 20240516, end: 20240516
  5. DEXAMETHASONE [Concomitant]
     Active Substance: DEXAMETHASONE
     Indication: Ovarian cancer
     Dates: start: 20240515, end: 20240515

REACTIONS (4)
  - Hypotension [Recovered/Resolved]
  - Dyspnoea [Recovered/Resolved]
  - Hyperhidrosis [Recovered/Resolved]
  - Malaise [Recovered/Resolved]

NARRATIVE: CASE EVENT DATE: 20240516
